FAERS Safety Report 16026292 (Version 1)
Quarter: 2019Q1

REPORT INFORMATION
  Report Type: Spontaneous
  Country: US (occurrence: US)
  Receive Date: 20190302
  Receipt Date: 20190302
  Transmission Date: 20190418
  Serious: No
  Sender: FDA-Public Use
  Company Number: US-NOVOPROD-618732

PATIENT
  Age: 69 Year
  Sex: Male

DRUGS (8)
  1. VICTOZA [Suspect]
     Active Substance: LIRAGLUTIDE
     Dosage: 0.6 MG, QD
     Route: 058
     Dates: start: 20180814
  2. VICTOZA [Suspect]
     Active Substance: LIRAGLUTIDE
     Dosage: 6 CLICKS FOR 1 WEEK
     Route: 058
     Dates: start: 20180807, end: 20180813
  3. VICTOZA [Suspect]
     Active Substance: LIRAGLUTIDE
     Indication: TYPE 2 DIABETES MELLITUS
     Dosage: 0.6 MG, QD
     Route: 058
     Dates: start: 20180627, end: 20180703
  4. VICTOZA [Suspect]
     Active Substance: LIRAGLUTIDE
     Dosage: 1.2 MG, QD
     Route: 058
     Dates: start: 20180704, end: 20180710
  5. VICTOZA [Suspect]
     Active Substance: LIRAGLUTIDE
     Dosage: 1.8 MG, QD
     Route: 058
     Dates: start: 20180711, end: 20180713
  6. VICTOZA [Suspect]
     Active Substance: LIRAGLUTIDE
     Dosage: 3 CLICKS FOR 1 WEEK
     Route: 058
     Dates: start: 20180717, end: 20180723
  7. VICTOZA [Suspect]
     Active Substance: LIRAGLUTIDE
     Dosage: 5 CLICKS FOR 1 WEEK
     Route: 058
     Dates: start: 20180731, end: 20180806
  8. VICTOZA [Suspect]
     Active Substance: LIRAGLUTIDE
     Dosage: 4 CLICKS FOR 1 WEEK
     Route: 058
     Dates: start: 20180724, end: 20180730

REACTIONS (4)
  - Weight decreased [Unknown]
  - Off label use [Recovered/Resolved]
  - Blister [Not Recovered/Not Resolved]
  - Decreased appetite [Recovered/Resolved]

NARRATIVE: CASE EVENT DATE: 2018
